FAERS Safety Report 9135669 (Version 1)
Quarter: 2013Q1

REPORT INFORMATION
  Report Type: Spontaneous
  Country: US (occurrence: US)
  Receive Date: 20130304
  Receipt Date: 20130304
  Transmission Date: 20140127
  Serious: No
  Sender: FDA-Public Use
  Company Number: US-ENDO PHARMACEUTICALS INC.-ENDC20110207

PATIENT
  Age: 49 Year
  Sex: Male

DRUGS (2)
  1. ENDOCET [Suspect]
     Indication: BREAKTHROUGH PAIN
     Dosage: 30MG/975MG
     Route: 048
  2. OXYCODONE [Concomitant]
     Indication: PAIN
     Route: 048

REACTIONS (1)
  - Drug level decreased [Unknown]
